FAERS Safety Report 14472319 (Version 1)
Quarter: 2018Q1

REPORT INFORMATION
  Report Type: Spontaneous
  Country: US (occurrence: US)
  Receive Date: 20180131
  Receipt Date: 20180131
  Transmission Date: 20180509
  Serious: Yes (Other)
  Sender: FDA-Public Use
  Company Number: US-ROCHE-2059367

PATIENT
  Sex: Male

DRUGS (2)
  1. AVASTIN [Suspect]
     Active Substance: BEVACIZUMAB
     Indication: COLORECTAL CANCER METASTATIC
     Dosage: ONGOING: UNKNOWN
     Route: 065
  2. 5-FU [Concomitant]
     Active Substance: FLUOROURACIL
     Dosage: 5FU-BASED (CHEMOTHERAPY (UNK INGREDIENTS));ONGOING: UNKNOWN
     Route: 065

REACTIONS (1)
  - Hepatic cirrhosis [Unknown]
